FAERS Safety Report 10713231 (Version 1)
Quarter: 2015Q1

REPORT INFORMATION
  Report Type: Spontaneous
  Country: US (occurrence: None)
  Receive Date: 20150114
  Receipt Date: 20150114
  Transmission Date: 20150721
  Serious: Yes (Hospitalization)
  Sender: FDA-Public Use
  Company Number: None

PATIENT
  Age: 80 Year
  Sex: Male
  Weight: 126.1 kg

DRUGS (1)
  1. SYMBICORT [Suspect]
     Active Substance: BUDESONIDE\FORMOTEROL FUMARATE DIHYDRATE
     Indication: BRONCHITIS
     Dosage: 2 PUFFS TWICE DAY, TWICE DAILY, INHALATION
     Route: 055
     Dates: start: 20150101, end: 20150104

REACTIONS (6)
  - Haemorrhage [None]
  - Lower limb fracture [None]
  - Loss of consciousness [None]
  - Vision blurred [None]
  - Fall [None]
  - Tremor [None]

NARRATIVE: CASE EVENT DATE: 20150101
